FAERS Safety Report 4358405-3 (Version None)
Quarter: 2004Q2

REPORT INFORMATION
  Report Type: 
  Country: None (occurrence: None)
  Receive Date: 20040511
  Receipt Date: 20040427
  Transmission Date: 20050107
  Serious: Yes (Hospitalization)
  Sender: FDA-Public Use
  Company Number: US-JNJFOC-20040405953

PATIENT
  Age: 72 Year
  Sex: Female

DRUGS (12)
  1. INFLIXIMAB (INFLIXIMAB, RECOMBINANT) LYOPHILIZED POWDER [Suspect]
     Indication: RHEUMATOID ARTHRITIS
     Dosage: INTRAVENOUS
     Route: 042
     Dates: start: 20020219, end: 20020701
  2. METOPROLOL (METOPROLOL) [Concomitant]
  3. MYRALACT (MYRALACT) [Concomitant]
  4. IMDUR [Concomitant]
  5. ALBUTEROL [Concomitant]
  6. LOVASTATIN [Concomitant]
  7. REGLAN [Concomitant]
  8. FOLATE (FOLATE SODIUM) [Concomitant]
  9. ACIPHEX (REBEPRAZOLE SODIUM) [Concomitant]
  10. ASPIRIN [Concomitant]
  11. PREDNISONE [Concomitant]
  12. METHOTREXATE [Concomitant]

REACTIONS (7)
  - BACTERIAL INFECTION [None]
  - CELLULITIS [None]
  - DIARRHOEA [None]
  - ERYTHEMA [None]
  - GOUT [None]
  - JOINT SWELLING [None]
  - THROMBOPHLEBITIS [None]
